FAERS Safety Report 19524590 (Version 2)
Quarter: 2024Q3

REPORT INFORMATION
  Report Type: Spontaneous
  Country: US (occurrence: US)
  Receive Date: 20210713
  Receipt Date: 20240828
  Transmission Date: 20241016
  Serious: Yes (Death, Hospitalization)
  Sender: CSL BEHRING
  Company Number: US-BEH-2021133711

PATIENT
  Age: 89 Year
  Sex: Female

DRUGS (3)
  1. HIZENTRA [Suspect]
     Active Substance: HUMAN IMMUNOGLOBULIN G
     Indication: Immunodeficiency common variable
     Dosage: 12 GRAM, BIW
     Route: 058
     Dates: start: 2017
  2. HIZENTRA [Suspect]
     Active Substance: HUMAN IMMUNOGLOBULIN G
     Dosage: 4 G, BIW
     Route: 058
     Dates: start: 201710
  3. HIZENTRA [Suspect]
     Active Substance: HUMAN IMMUNOGLOBULIN G
     Dosage: 10 G, BIW
     Route: 058
     Dates: start: 201710

REACTIONS (2)
  - Death [Fatal]
  - Hypertension [Unknown]

NARRATIVE: CASE EVENT DATE: 20210618
